FAERS Safety Report 5632984-8 (Version None)
Quarter: 2008Q1

REPORT INFORMATION
  Report Type: 
  Country: None (occurrence: None)
  Receive Date: 20080221
  Receipt Date: 20080213
  Transmission Date: 20080703
  Serious: Yes (Other)
  Sender: FDA-Public Use
  Company Number: US-JNJFOC-20080203679

PATIENT
  Sex: Female

DRUGS (1)
  1. DURAGESIC-100 [Suspect]
     Indication: PAIN
     Dosage: 100 MCG/HR AND 25 MCG/HR PATCHES
     Route: 062

REACTIONS (5)
  - FALL [None]
  - HIP FRACTURE [None]
  - ROTATOR CUFF SYNDROME [None]
  - SOMNOLENCE [None]
  - SPEECH DISORDER [None]
